FAERS Safety Report 9562854 (Version 1)
Quarter: 2013Q3

REPORT INFORMATION
  Report Type: Spontaneous
  Country: US (occurrence: US)
  Receive Date: 20130927
  Receipt Date: 20130927
  Transmission Date: 20140515
  Serious: Yes (Other)
  Sender: FDA-Public Use
  Company Number: GXBR2013US001627

PATIENT
  Age: 78 Year
  Sex: Female
  Weight: 71.2 kg

DRUGS (1)
  1. LISINOPRIL/HCTZ [Suspect]
     Indication: HYPERTENSION
     Dosage: 20MG LISINOPRIL AND 25MG HYDROCHLOROTHIAZIDE, QD
     Route: 048
     Dates: end: 20130824

REACTIONS (2)
  - Leukaemia [Not Recovered/Not Resolved]
  - Leukocytosis [Not Recovered/Not Resolved]
